FAERS Safety Report 5934489-3 (Version None)
Quarter: 2008Q4

REPORT INFORMATION
  Report Type: 
  Country: None (occurrence: None)
  Receive Date: 20081029
  Receipt Date: 20081020
  Transmission Date: 20090506
  Serious: Yes (Hospitalization)
  Sender: FDA-Public Use
  Company Number: US-JNJFOC-20071203592

PATIENT
  Sex: Female
  Weight: 83.92 kg

DRUGS (2)
  1. ORTHO EVRA [Suspect]
     Indication: DRUG USE FOR UNKNOWN INDICATION
     Route: 062
  2. MUSCLE RELAXANT, NOS [Concomitant]
     Indication: MUSCLE RELAXANT THERAPY

REACTIONS (2)
  - DEEP VEIN THROMBOSIS [None]
  - THROMBOCYTHAEMIA [None]
